FAERS Safety Report 6057059-8 (Version None)
Quarter: 2009Q1

REPORT INFORMATION
  Report Type: 
  Country: None (occurrence: None)
  Receive Date: 20090126
  Receipt Date: 20090107
  Transmission Date: 20090719
  Serious: Yes (Death)
  Sender: FDA-Public Use
  Company Number: B0553773A

PATIENT
  Age: 69 Year
  Sex: Male

DRUGS (14)
  1. ALBUTEROL SULFATE [Suspect]
     Dosage: UNK/UNK/ORAL
     Route: 048
  2. AMLODIPINE [Suspect]
     Dosage: UNK/UNK/ORAL
     Route: 048
  3. METOPROLOL TARTRATE [Suspect]
     Dosage: UNK/UNK/ORAL
     Route: 048
  4. CLONIDINE [Suspect]
     Dosage: UNK/UNK/ORAL
     Route: 048
  5. SALICYLATE (FORMULATION UNKNOWN) (SALICYLATE) [Suspect]
     Dosage: UNK/UNK/ORAL
     Route: 048
  6. RANITIDINE HYDROCHLORIDE [Suspect]
     Dosage: UNK/UNK/ORAL
     Route: 048
  7. TIAGABINE HCL [Suspect]
     Dosage: UNK/UNK/ORAL
     Route: 048
  8. DIURETIC (FORMULATION UNIKNOWN) (DIURETIC) [Suspect]
     Dosage: UNK/UNK/ORAL
     Route: 048
  9. CLOPIDOGREL [Suspect]
     Dosage: UNK/UNK/ORAL
     Route: 048
  10. LISINOPRIL [Suspect]
     Dosage: UNK/UNK/ORAL
     Route: 048
  11. EZETIMIBE [Suspect]
     Dosage: UNK/UNK/ORAL
     Route: 048
  12. LORAZEPAM [Suspect]
     Dosage: UNK/UNK/ORAL
     Route: 048
  13. ATORVASTATIN CALCIUM [Suspect]
     Dosage: UNK/UNK/ORAL
     Route: 048
  14. PHENYTOIN [Suspect]
     Dosage: UNK/UNK/ORAL
     Route: 048

REACTIONS (1)
  - COMPLETED SUICIDE [None]
